FAERS Safety Report 7717663-5 (Version None)
Quarter: 2011Q3

REPORT INFORMATION
  Report Type: 
  Country: None (occurrence: None)
  Receive Date: 20110830
  Receipt Date: 20110824
  Transmission Date: 20111222
  Serious: Yes (Other)
  Sender: FDA-Public Use
  Company Number: US-AMGEN-USASP2011043425

PATIENT
  Age: 48 Year
  Sex: Female

DRUGS (6)
  1. HYDROCHLOROTHIAZIDE [Concomitant]
  2. PEPCID [Concomitant]
  3. NEULASTA [Suspect]
     Indication: CHEMOTHERAPY
     Dates: start: 20110818
  4. CYTOXAN [Concomitant]
     Indication: BREAST CANCER
     Dosage: UNK
     Dates: start: 20110817
  5. ATIVAN [Concomitant]
     Dosage: UNK
     Dates: start: 20110817
  6. ADRIAMYCIN PFS [Concomitant]
     Indication: BREAST CANCER
     Dosage: UNK
     Dates: start: 20110817

REACTIONS (3)
  - HYPOAESTHESIA [None]
  - DYSPNOEA [None]
  - DIZZINESS [None]
